FAERS Safety Report 9347919 (Version 1)
Quarter: 2013Q2

REPORT INFORMATION
  Report Type: Spontaneous
  Country: IN (occurrence: IN)
  Receive Date: 20130614
  Receipt Date: 20130614
  Transmission Date: 20140414
  Serious: Yes (Other)
  Sender: FDA-Public Use
  Company Number: IN-ASTRAZENECA-2013SE42005

PATIENT
  Age: 56 Year
  Sex: Male

DRUGS (3)
  1. BRILINTA [Suspect]
     Indication: CORONARY ARTERY PERFORATION
     Route: 048
  2. ASPIRIN [Concomitant]
     Indication: CORONARY ARTERY PERFORATION
     Route: 048
  3. OTHER REQUIRED MEDICINES [Concomitant]
     Indication: CORONARY ARTERY PERFORATION

REACTIONS (2)
  - Sinus bradycardia [Recovered/Resolved]
  - Ventricular extrasystoles [Recovered/Resolved]
